FAERS Safety Report 24162598 (Version 1)
Quarter: 2024Q3

REPORT INFORMATION
  Report Type: Spontaneous
  Country: GB (occurrence: GB)
  Receive Date: 20240801
  Receipt Date: 20240801
  Transmission Date: 20241017
  Serious: Yes (Hospitalization)
  Sender: MYLAN
  Company Number: GB-MYLANLABS-2024M1070789

PATIENT
  Age: 3 Year
  Sex: Male

DRUGS (12)
  1. POSACONAZOLE [Suspect]
     Active Substance: POSACONAZOLE
     Indication: Pneumonia fungal
     Dosage: 200 MILLIGRAM, TID
     Route: 048
  2. POSACONAZOLE [Suspect]
     Active Substance: POSACONAZOLE
     Dosage: THE DOSE OF POSACONAZOLE WAS INCREASED
     Route: 048
  3. CASPOFUNGIN [Suspect]
     Active Substance: CASPOFUNGIN
     Indication: Pneumonia fungal
     Dosage: 50 MILLIGRAM/SQ. METER (RECEIVED FOR 6 WEEK)
     Route: 065
  4. AMPHOTERICIN B [Suspect]
     Active Substance: AMPHOTERICIN B
     Indication: Pneumonia fungal
     Dosage: 1 MILLIGRAM/KILOGRAM, 3XW (THREE DAYS A WEEK)
     Route: 065
  5. ANIDULAFUNGIN [Suspect]
     Active Substance: ANIDULAFUNGIN
     Indication: Pneumonia fungal
     Dosage: 1.5 MILLIGRAM/KILOGRAM
     Route: 065
  6. METHYLPREDNISOLONE [Concomitant]
     Active Substance: METHYLPREDNISOLONE
     Indication: Engraftment syndrome
     Dosage: 1 MILLIGRAM/KILOGRAM
     Route: 065
  7. METHYLPREDNISOLONE [Concomitant]
     Active Substance: METHYLPREDNISOLONE
     Indication: Graft versus host disease
  8. METHYLPREDNISOLONE [Concomitant]
     Active Substance: METHYLPREDNISOLONE
     Indication: Engraftment syndrome
     Dosage: 2 MILLILITRE PER KILOGRAM
     Route: 042
  9. METHYLPREDNISOLONE [Concomitant]
     Active Substance: METHYLPREDNISOLONE
     Indication: Graft versus host disease
  10. CYCLOSPORINE [Concomitant]
     Active Substance: CYCLOSPORINE
     Indication: Graft versus host disease
     Dosage: UNK
     Route: 065
  11. MYCOPHENOLATE MOFETIL [Concomitant]
     Active Substance: MYCOPHENOLATE MOFETIL
     Indication: Graft versus host disease
     Dosage: UNK
     Route: 065
  12. ETANERCEPT [Concomitant]
     Active Substance: ETANERCEPT
     Indication: Graft versus host disease
     Dosage: UNK
     Route: 065

REACTIONS (1)
  - Drug ineffective [Unknown]
